FAERS Safety Report 4698967-X (Version None)
Quarter: 2005Q2

REPORT INFORMATION
  Report Type: 
  Country: None (occurrence: None)
  Receive Date: 20050622
  Receipt Date: 20050622
  Transmission Date: 20051028
  Serious: Yes (Hospitalization)
  Sender: FDA-Public Use
  Company Number: None

PATIENT
  Age: 82 Year
  Sex: Female
  Weight: 103.7 kg

DRUGS (1)
  1. WARFARIN 3MG [Suspect]
     Dosage: 1.5MG DAILY ORAL
     Route: 048

REACTIONS (2)
  - CONTUSION [None]
  - HAEMATOMA [None]
